FAERS Safety Report 11074770 (Version 2)
Quarter: 2015Q2

REPORT INFORMATION
  Report Type: Spontaneous
  Country: PT (occurrence: PT)
  Receive Date: 20150429
  Receipt Date: 20150515
  Transmission Date: 20150821
  Serious: Yes (Life-Threatening)
  Sender: FDA-Public Use
  Company Number: PT-ACTAVIS-2015-08581

PATIENT
  Age: 71 Year
  Sex: Female
  Weight: 64 kg

DRUGS (5)
  1. DEXAMETASONA                       /00016001/ [Concomitant]
     Indication: PREMEDICATION
     Dosage: 20 MG, 1/ THREE WEEKS
     Route: 042
     Dates: start: 20150331, end: 20150331
  2. GLUCOSE [Concomitant]
     Active Substance: DEXTROSE
     Indication: MEDICATION DILUTION
     Dosage: 250 ML, 1/ THREE WEEKS
     Route: 042
     Dates: start: 20150331, end: 20150331
  3. SODIUM CHLORIDE. [Concomitant]
     Active Substance: SODIUM CHLORIDE
     Indication: MEDICATION DILUTION
     Dosage: 100 ML, 1/ THREE WEEKS
     Route: 042
     Dates: start: 20150331, end: 20150331
  4. GRANISETRON [Concomitant]
     Active Substance: GRANISETRON
     Indication: PREMEDICATION
     Dosage: 1 MG, 1/ THREE WEEKS
     Route: 042
     Dates: start: 20150331, end: 20150331
  5. DOCETAXEL ACTAVIS [Suspect]
     Active Substance: DOCETAXEL
     Indication: BREAST CANCER
     Dosage: 124 MG, 1/ THREE WEEKS
     Route: 042
     Dates: start: 20150331, end: 20150331

REACTIONS (6)
  - Loss of consciousness [Recovered/Resolved]
  - Vomiting [Recovered/Resolved]
  - Hypoxia [Recovered/Resolved]
  - Anaphylactic reaction [Recovered/Resolved]
  - Hypotension [Recovered/Resolved]
  - Bradycardia [Recovered/Resolved]

NARRATIVE: CASE EVENT DATE: 20150331
